FAERS Safety Report 7406441-2 (Version None)
Quarter: 2011Q2

REPORT INFORMATION
  Report Type: 
  Country: None (occurrence: None)
  Receive Date: 20110411
  Receipt Date: 20110405
  Transmission Date: 20111010
  Serious: Yes (Other)
  Sender: FDA-Public Use
  Company Number: SA-JNJFOC-20110402482

PATIENT
  Age: 58 Year
  Sex: Male

DRUGS (2)
  1. ABCIXIMAB [Suspect]
     Indication: PERCUTANEOUS CORONARY INTERVENTION
     Route: 065
  2. HEPARIN [Suspect]
     Indication: PERCUTANEOUS CORONARY INTERVENTION
     Route: 065

REACTIONS (9)
  - MUSCULOSKELETAL PAIN [None]
  - DYSPNOEA [None]
  - CHOKING [None]
  - HEADACHE [None]
  - OROPHARYNGEAL PAIN [None]
  - RESTLESSNESS [None]
  - HYPERTENSION [None]
  - NECK PAIN [None]
  - DRUG HYPERSENSITIVITY [None]
